FAERS Safety Report 20114154 (Version 1)
Quarter: 2021Q4

REPORT INFORMATION
  Report Type: Report from Study
  Country: ES (occurrence: ES)
  Receive Date: 20211125
  Receipt Date: 20211125
  Transmission Date: 20220303
  Serious: Yes (Other)
  Sender: FDA-Public Use
  Company Number: ES-TEVA-2021-ES-1979946

PATIENT
  Age: 41 Year
  Sex: Female

DRUGS (5)
  1. MYCOPHENOLATE MOFETIL [Suspect]
     Active Substance: MYCOPHENOLATE MOFETIL
     Indication: Bone marrow conditioning regimen
     Dosage: RECEIVED FOR THREE WEEKS
     Route: 042
  2. RITUXIMAB [Suspect]
     Active Substance: RITUXIMAB
     Indication: Bone marrow conditioning regimen
     Dosage: THREE DOSES ADMINISTERED WEEKLY STARTING FROM DAY -35
     Route: 065
  3. BUSULFAN [Suspect]
     Active Substance: BUSULFAN
     Indication: Bone marrow conditioning regimen
     Dosage: 3.2 MG/KG DAILY; RECEIVED EITHER ONE OR TWO DAYS ON DAYS -3 AND -2.
     Route: 042
  4. INOTUZUMAB OZOGAMICIN [Suspect]
     Active Substance: INOTUZUMAB OZOGAMICIN
     Indication: Product used for unknown indication
     Route: 065
  5. Immunoglobulin [Concomitant]
     Indication: Bone marrow conditioning regimen
     Dosage: .4 MG/KG DAILY;
     Route: 042

REACTIONS (3)
  - Venoocclusive liver disease [Recovered/Resolved]
  - Bacteraemia [Recovered/Resolved]
  - Demyelinating polyneuropathy [Recovered/Resolved]
